FAERS Safety Report 15636323 (Version 1)
Quarter: 2018Q4

REPORT INFORMATION
  Report Type: Spontaneous
  Country: US (occurrence: US)
  Receive Date: 20181120
  Receipt Date: 20181120
  Transmission Date: 20190205
  Serious: Yes (Hospitalization)
  Sender: FDA-Public Use
  Company Number: US-B.I. PHARMACEUTICALS,INC./RIDGEFIELD-2018-BI-055554

PATIENT
  Sex: Male

DRUGS (5)
  1. DIGOXIN. [Concomitant]
     Active Substance: DIGOXIN
     Dosage: ONCE DAILY AND EVERY OTHER DAY 1 TABLET BID;  FORMULATION: TABLET;
     Route: 048
     Dates: start: 2016
  2. DIGOXIN. [Concomitant]
     Active Substance: DIGOXIN
     Indication: HYPERTENSION
     Dosage: ONCE DAILY AND EVERY OTHER DAY 1 TABLET BID;  FORMULATION: TABLET;
     Route: 048
     Dates: start: 2016
  3. PRADAXA [Suspect]
     Active Substance: DABIGATRAN ETEXILATE MESYLATE
     Indication: ATRIAL FIBRILLATION
     Dosage: FORM STRENGTH: 150 MG; FORMULATION: CAPSULE? ?ACTION(S) TAKEN WITH PRODUCT: DOSE NOT CHANGED
     Route: 048
     Dates: start: 2008
  4. DIGOXIN. [Concomitant]
     Active Substance: DIGOXIN
     Dosage: ONCE DAILY AND EVERY OTHER DAY 1 TABLET BID;  FORMULATION: TABLET;
     Route: 048
     Dates: start: 2016
  5. VALSARTAN/HYDROCHLOROTHIAZIDE [Concomitant]
     Active Substance: HYDROCHLOROTHIAZIDE\VALSARTAN
     Indication: PRODUCT USED FOR UNKNOWN INDICATION
     Dosage: FORM STRENGTH: 250MG/25MG; FORMULATION: CAPLET
     Route: 048
     Dates: start: 2013

REACTIONS (2)
  - Aortic valve calcification [Not Recovered/Not Resolved]
  - Mitral valve calcification [Not Recovered/Not Resolved]

NARRATIVE: CASE EVENT DATE: 2018
